FAERS Safety Report 16037647 (Version 1)
Quarter: 2019Q1

REPORT INFORMATION
  Report Type: Spontaneous
  Country: FR (occurrence: FR)
  Receive Date: 20190305
  Receipt Date: 20190305
  Transmission Date: 20190418
  Serious: Yes (Death, Hospitalization)
  Sender: FDA-Public Use
  Company Number: FR-MYLANLABS-2019M1020157

PATIENT
  Age: 48 Year
  Sex: Male

DRUGS (7)
  1. AMOXICILLIN/CLAVULANIC ACID [Suspect]
     Active Substance: AMOXICILLIN\CLAVULANIC ACID
     Indication: SEPTIC SHOCK
     Route: 065
  2. CLINDAMYCIN. [Suspect]
     Active Substance: CLINDAMYCIN
     Indication: SEPTIC SHOCK
     Route: 065
  3. GENTAMICIN. [Suspect]
     Active Substance: GENTAMICIN
     Indication: CAPNOCYTOPHAGA INFECTION
  4. AMOXICILLIN/CLAVULANIC ACID [Suspect]
     Active Substance: AMOXICILLIN\CLAVULANIC ACID
     Indication: CAPNOCYTOPHAGA INFECTION
  5. CLINDAMYCIN. [Suspect]
     Active Substance: CLINDAMYCIN
     Indication: CAPNOCYTOPHAGA INFECTION
  6. GENTAMICIN. [Suspect]
     Active Substance: GENTAMICIN
     Indication: SEPTIC SHOCK
     Route: 065
  7. NOREPINEPHRINE. [Suspect]
     Active Substance: NOREPINEPHRINE
     Indication: SEPTIC SHOCK
     Route: 065

REACTIONS (13)
  - Condition aggravated [None]
  - Disseminated intravascular coagulation [None]
  - Hyperlactacidaemia [None]
  - Lividity [None]
  - Enterocolitis [None]
  - Respiratory distress [None]
  - Metabolic acidosis [None]
  - Multiple organ dysfunction syndrome [None]
  - Thrombocytopenia [None]
  - Capnocytophaga sepsis [None]
  - Drug ineffective [Fatal]
  - Acute kidney injury [None]
  - Hepatic steatosis [None]
